FAERS Safety Report 7465838-5 (Version None)
Quarter: 2011Q2

REPORT INFORMATION
  Report Type: 
  Country: None (occurrence: None)
  Receive Date: 20110509
  Receipt Date: 20100408
  Transmission Date: 20111010
  Serious: No
  Sender: FDA-Public Use
  Company Number: US-ALEXION-A201000301

PATIENT
  Sex: Male
  Weight: 84.807 kg

DRUGS (2)
  1. SOLIRIS [Suspect]
     Dosage: 900 MG, Q2WKS
  2. SOLIRIS [Suspect]
     Indication: PAROXYSMAL NOCTURNAL HAEMOGLOBINURIA
     Dosage: 600 MG, QWKX4
     Route: 042
     Dates: start: 20090101

REACTIONS (5)
  - FATIGUE [None]
  - TRANSFUSION [None]
  - HAEMOGLOBINURIA [None]
  - BLOOD LACTATE DEHYDROGENASE INCREASED [None]
  - HAEMOGLOBIN DECREASED [None]
